FAERS Safety Report 11514870 (Version 1)
Quarter: 2015Q3

REPORT INFORMATION
  Report Type: Spontaneous
  Country: JP (occurrence: JP)
  Receive Date: 20150916
  Receipt Date: 20150916
  Transmission Date: 20151125
  Serious: Yes (Hospitalization, Other)
  Sender: FDA-Public Use
  Company Number: JP-PFIZER INC-2015307885

PATIENT
  Age: 79 Year
  Sex: Female

DRUGS (4)
  1. DESYREL [Suspect]
     Active Substance: TRAZODONE HYDROCHLORIDE
     Dosage: UNK, 2X/DAY (IN THE MORNING AND EVENING)
     Route: 048
     Dates: start: 2015
  2. SOLANAX [Suspect]
     Active Substance: ALPRAZOLAM
     Dosage: UNK, 1X/DAY (IN THE MORNING)
     Route: 048
     Dates: end: 2015
  3. SOLANAX [Suspect]
     Active Substance: ALPRAZOLAM
     Dosage: UNK, 2X/DAY (IN THE MORNING AND EVENING)
     Route: 048
     Dates: start: 2015
  4. DESYREL [Suspect]
     Active Substance: TRAZODONE HYDROCHLORIDE
     Dosage: UNK, 1X/DAY (IN THE MORNING)
     Route: 048
     Dates: end: 2015

REACTIONS (8)
  - Mental status changes [Unknown]
  - Confusional state [Unknown]
  - Altered state of consciousness [Recovered/Resolved]
  - Seizure [Unknown]
  - Dysuria [Unknown]
  - Asthenia [Unknown]
  - Urinary incontinence [Unknown]
  - Drug dependence [Unknown]

NARRATIVE: CASE EVENT DATE: 2015
